FAERS Safety Report 5841135-6 (Version None)
Quarter: 2008Q3

REPORT INFORMATION
  Report Type: 
  Country: None (occurrence: None)
  Receive Date: 20080811
  Receipt Date: 20080811
  Transmission Date: 20090109
  Serious: Yes (Hospitalization)
  Sender: FDA-Public Use
  Company Number: None

PATIENT
  Sex: Male
  Weight: 4.8 kg

DRUGS (8)
  1. CYCLOPHOSPHAMIDE [Suspect]
     Dosage: 367 MG
  2. DOXORUBICIN HYDROCHLORIDE [Suspect]
     Dosage: 12.4 MG
  3. ETOPOSIDE [Suspect]
     Dosage: 77.5 MG
  4. IFOSFAMIDE [Suspect]
     Dosage: 1400 MG
  5. TOPOTECAN [Suspect]
     Dosage: .5 MG
  6. VINCRISTINE SULFATE [Suspect]
     Dosage: .9 MG
  7. MORPHINE [Concomitant]
  8. OXYCODONE HCL [Concomitant]

REACTIONS (7)
  - APNOEA [None]
  - BRADYPNOEA [None]
  - CLOSTRIDIUM DIFFICILE TOXIN TEST POSITIVE [None]
  - FUNGAL INFECTION [None]
  - MOUTH ULCERATION [None]
  - PNEUMONIA KLEBSIELLA [None]
  - STOMATITIS [None]
